FAERS Safety Report 7105108-8 (Version None)
Quarter: 2010Q4

REPORT INFORMATION
  Report Type: 
  Country: None (occurrence: None)
  Receive Date: 20101109
  Receipt Date: 20101026
  Transmission Date: 20110411
  Serious: Yes (Death, Hospitalization, Other)
  Sender: FDA-Public Use
  Company Number: 2010P1002347

PATIENT
  Age: 2 Day
  Sex: Female
  Weight: 3.62 kg

DRUGS (5)
  1. AMMONAPS POWDER (NO PREF. NAME) [Suspect]
     Indication: HYPERAMMONAEMIA
     Dosage: 250 MG/KG;LOADING DOSE; 250 MG/KG;MAINTENANCE
     Dates: start: 20101006, end: 20101007
  2. AMMONAPS POWDER (NO PREF. NAME) [Suspect]
     Indication: HYPERAMMONAEMIA
     Dosage: 250 MG/KG;LOADING DOSE; 250 MG/KG;MAINTENANCE
     Dates: start: 20101006, end: 20101007
  3. SODIUM BENZOATE SODIUM [Concomitant]
  4. BENZOATE [Concomitant]
  5. CARBAGLU (CARGLUMIC ACID) [Concomitant]

REACTIONS (7)
  - CARNITINE PALMITOYLTRANSFERASE DEFICIENCY [None]
  - COMA [None]
  - DISEASE PROGRESSION [None]
  - METABOLIC ACIDOSIS [None]
  - METABOLIC DISORDER [None]
  - MULTI-ORGAN FAILURE [None]
  - RENAL FAILURE [None]
